FAERS Safety Report 5303891-5 (Version None)
Quarter: 2007Q1

REPORT INFORMATION
  Report Type: 
  Country: None (occurrence: None)
  Receive Date: 20070201
  Receipt Date: 20061116
  Transmission Date: 20070707
  Serious: No
  Sender: FDA-Public Use
  Company Number: 2006PV025429

PATIENT
  Age: 51 Year
  Sex: Male
  Weight: 93.8946 kg

DRUGS (6)
  1. BYETTA [Suspect]
     Indication: DRUG USE FOR UNKNOWN INDICATION
     Dosage: SEE IMAGE
     Route: 058
     Dates: start: 20060601, end: 20060701
  2. BYETTA [Suspect]
     Indication: DRUG USE FOR UNKNOWN INDICATION
     Dosage: SEE IMAGE
     Route: 058
     Dates: start: 20060701
  3. GLUCOTROL [Concomitant]
  4. GLUCOPHAGE [Concomitant]
  5. CRESTOR [Concomitant]
  6. ZETIA [Concomitant]

REACTIONS (4)
  - BLOOD GLUCOSE INCREASED [None]
  - FEELING JITTERY [None]
  - HYPERHIDROSIS [None]
  - WEIGHT DECREASED [None]
